FAERS Safety Report 8830275 (Version 1)
Quarter: 2012Q4

REPORT INFORMATION
  Report Type: 
  Country: US (occurrence: US)
  Receive Date: 20121009
  Receipt Date: 20121009
  Transmission Date: 20130627
  Serious: Yes (Other)
  Sender: FDA-Public Use
  Company Number: US-PFIZER INC-2012247812

PATIENT
  Age: 9 Year
  Sex: Male
  Weight: 29.03 kg

DRUGS (3)
  1. CHILDRENS ADVIL [Suspect]
     Indication: HEADACHE
     Dosage: UNK
  2. CHILDRENS ADVIL [Suspect]
     Dosage: UNK
     Dates: start: 20121005, end: 201210
  3. ALBUTEROL [Concomitant]
     Indication: ASTHMA
     Dosage: 0.83 %, as needed (every 4 hours)

REACTIONS (5)
  - Dyspnoea [Not Recovered/Not Resolved]
  - Pruritus generalised [Not Recovered/Not Resolved]
  - Urticaria [Not Recovered/Not Resolved]
  - Erythema [Not Recovered/Not Resolved]
  - Swelling face [Not Recovered/Not Resolved]
